FAERS Safety Report 6621795-2 (Version None)
Quarter: 2010Q1

REPORT INFORMATION
  Report Type: 
  Country: None (occurrence: None)
  Receive Date: 20100309
  Receipt Date: 20100224
  Transmission Date: 20100710
  Serious: Yes (Death)
  Sender: FDA-Public Use
  Company Number: PHHY2010US12667

PATIENT
  Sex: Female

DRUGS (1)
  1. BETIMOL 0.5% (NVO) [Suspect]
     Dosage: UNK
     Route: 047

REACTIONS (1)
  - DEATH [None]
